FAERS Safety Report 11267909 (Version 1)
Quarter: 2015Q3

REPORT INFORMATION
  Report Type: Spontaneous
  Country: US (occurrence: US)
  Receive Date: 20150713
  Receipt Date: 20150713
  Transmission Date: 20151125
  Serious: Yes (Other)
  Sender: FDA-Public Use
  Company Number: US-MPIJNJ-2014MPI000650

PATIENT
  Age: 76 Year
  Sex: Male
  Weight: 77.98 kg

DRUGS (10)
  1. VELCADE [Suspect]
     Active Substance: BORTEZOMIB
     Indication: PLASMA CELL MYELOMA
     Dosage: UNK (INDUCTION THERAPY)
     Route: 042
     Dates: start: 20110620
  2. VELCADE [Suspect]
     Active Substance: BORTEZOMIB
     Dosage: UNK, CYCLIC (ONCE A WEEK FOR 3 WEEKS FOLLOWED BY 1 WEEK OFF)
     Route: 058
  3. DEXAMETHASONE. [Concomitant]
     Active Substance: DEXAMETHASONE
     Dosage: 8 MG, UNK
     Route: 048
  4. VELCADE [Suspect]
     Active Substance: BORTEZOMIB
     Dosage: UNK, CYCLIC (ONCE A WEEK FOR 3 WEEKS FOLLOWED BY 1 WEEK OFF)
     Route: 042
     Dates: start: 201112
  5. GLIPIZIDE. [Concomitant]
     Active Substance: GLIPIZIDE
     Dosage: 5 MG, BID
     Route: 048
  6. INSULIN [Concomitant]
     Active Substance: INSULIN NOS
     Dosage: UNK
  7. VELCADE [Suspect]
     Active Substance: BORTEZOMIB
     Dosage: UNK, CYCLIC (ONCE A WEEK FOR 3 WEEKS FOLLOWED BY 1 WEEK OFF)
     Route: 042
     Dates: start: 201112
  8. VELCADE [Suspect]
     Active Substance: BORTEZOMIB
     Dosage: UNK, 1/WEEK
  9. VELCADE [Suspect]
     Active Substance: BORTEZOMIB
     Dosage: UNK, CYCLIC (TWICE A WEEK FOR 2 WEEKS)
     Dates: start: 201304
  10. VELCADE [Suspect]
     Active Substance: BORTEZOMIB
     Dosage: UNK

REACTIONS (13)
  - Conjunctivitis [Unknown]
  - Sinusitis [Unknown]
  - Fatigue [Unknown]
  - Nasopharyngitis [Unknown]
  - Pneumonia [Unknown]
  - Influenza [Unknown]
  - Diarrhoea [Recovered/Resolved]
  - Plasma cell myeloma [Unknown]
  - Vomiting [Recovered/Resolved]
  - Nausea [Recovered/Resolved]
  - Bronchitis [Unknown]
  - Blood glucose increased [Unknown]
  - Asthenia [Recovered/Resolved]

NARRATIVE: CASE EVENT DATE: 201304
